FAERS Safety Report 18097388 (Version 1)
Quarter: 2020Q3

REPORT INFORMATION
  Report Type: Spontaneous
  Country: FR (occurrence: FR)
  Receive Date: 20200731
  Receipt Date: 20200731
  Transmission Date: 20201103
  Serious: Yes (Hospitalization)
  Sender: FDA-Public Use
  Company Number: FR-CADILA HEALTHCARE LIMITED-FR-ZYDUS-024314

PATIENT
  Age: 89 Year
  Sex: Female

DRUGS (5)
  1. CELIPROLOL [Concomitant]
     Active Substance: CELIPROLOL
     Route: 048
  2. IKOREL [Concomitant]
     Active Substance: NICORANDIL
     Route: 048
  3. ESIDREX [Suspect]
     Active Substance: HYDROCHLOROTHIAZIDE
     Indication: HYPERTENSION
     Route: 048
     Dates: end: 20180328
  4. LANSOPRAZOLE. [Suspect]
     Active Substance: LANSOPRAZOLE
     Indication: ABDOMINAL PAIN UPPER
     Route: 048
     Dates: end: 20180325
  5. DOLIPRAN (PARACETAMOL) [Concomitant]
     Active Substance: ACETAMINOPHEN
     Route: 065

REACTIONS (1)
  - Hyponatraemia [Recovered/Resolved]
